FAERS Safety Report 4773214-9 (Version None)
Quarter: 2005Q3

REPORT INFORMATION
  Report Type: 
  Country: None (occurrence: None)
  Receive Date: 20050919
  Receipt Date: 20050914
  Transmission Date: 20060218
  Serious: Yes (Hospitalization, Other)
  Sender: FDA-Public Use
  Company Number: US-MERCK-0509USA01894

PATIENT
  Age: 41 Year
  Sex: Female

DRUGS (3)
  1. CANCIDAS [Suspect]
     Indication: PELVIC ABSCESS
     Route: 042
     Dates: start: 20050901, end: 20050901
  2. PRIMAXIN [Concomitant]
     Route: 042
     Dates: start: 20050904
  3. INVANZ [Concomitant]
     Route: 042
     Dates: start: 20050901

REACTIONS (2)
  - BLOOD CREATINE INCREASED [None]
  - CONVULSION [None]
